FAERS Safety Report 24927967 (Version 2)
Quarter: 2025Q1

REPORT INFORMATION
  Report Type: Spontaneous
  Country: PT (occurrence: PT)
  Receive Date: 20250205
  Receipt Date: 20250206
  Transmission Date: 20250409
  Serious: Yes (Other)
  Sender: BAUSCH AND LOMB
  Company Number: PT-MLMSERVICE-20241231-PI328058-00059-1

PATIENT
  Age: 68 Year
  Sex: Female

DRUGS (10)
  1. AZATHIOPRINE [Suspect]
     Active Substance: AZATHIOPRINE
     Indication: Autoimmune haemolytic anaemia
     Dosage: TAPERED UNTIL MAXIMUM DOSE (250MG 2ID)
     Route: 065
  2. AZATHIOPRINE [Suspect]
     Active Substance: AZATHIOPRINE
     Indication: Reticulocytopenia
  3. PREDNISOLONE [Concomitant]
     Active Substance: PREDNISOLONE
     Indication: Autoimmune haemolytic anaemia
  4. PREDNISOLONE [Concomitant]
     Active Substance: PREDNISOLONE
     Indication: Reticulocytopenia
     Dosage: ESCALATED DOSE AND STARTED TO DECREASE STEROID DOSE AFTER DISCHARGE
  5. EPOETIN BETA [Concomitant]
     Active Substance: ERYTHROPOIETIN
     Indication: Autoimmune haemolytic anaemia
     Dosage: (EPOB) 30.000 TWICE WEEKLY
  6. EPOETIN BETA [Concomitant]
     Active Substance: ERYTHROPOIETIN
     Indication: Reticulocytopenia
  7. FOLIC ACID [Concomitant]
     Active Substance: FOLIC ACID
     Indication: Autoimmune haemolytic anaemia
  8. FOLIC ACID [Concomitant]
     Active Substance: FOLIC ACID
     Indication: Reticulocytopenia
  9. RITUXIMAB [Concomitant]
     Active Substance: RITUXIMAB
     Indication: Autoimmune haemolytic anaemia
  10. RITUXIMAB [Concomitant]
     Active Substance: RITUXIMAB
     Indication: Reticulocytopenia

REACTIONS (2)
  - Myelosuppression [Recovering/Resolving]
  - Hepatotoxicity [Unknown]
